FAERS Safety Report 15861533 (Version 1)
Quarter: 2019Q1

REPORT INFORMATION
  Report Type: Spontaneous
  Country: US (occurrence: US)
  Receive Date: 20190124
  Receipt Date: 20190124
  Transmission Date: 20190417
  Serious: Yes (Hospitalization)
  Sender: FDA-Public Use
  Company Number: US-PHARMING-PHAUS2019000055

PATIENT

DRUGS (31)
  1. TRAZODONE HYDROCHLORIDE. [Concomitant]
     Active Substance: TRAZODONE HYDROCHLORIDE
  2. VENLAFAXINE [Concomitant]
     Active Substance: VENLAFAXINE HYDROCHLORIDE
  3. BACLOFEN. [Concomitant]
     Active Substance: BACLOFEN
  4. SODIUM CHLORIDE. [Concomitant]
     Active Substance: SODIUM CHLORIDE
  5. STERILE WATER [Concomitant]
     Active Substance: WATER
  6. NORMAL SALINE [Concomitant]
     Active Substance: SODIUM CHLORIDE
  7. MAGNESIUM [Concomitant]
     Active Substance: MAGNESIUM
  8. BIOTIN [Concomitant]
     Active Substance: BIOTIN
  9. AMLODIPINE BESYLATE. [Concomitant]
     Active Substance: AMLODIPINE BESYLATE
  10. REGLAN [Concomitant]
     Active Substance: METOCLOPRAMIDE HYDROCHLORIDE
  11. BERINERT [Concomitant]
     Active Substance: HUMAN C1-ESTERASE INHIBITOR
  12. RUCONEST [Suspect]
     Active Substance: HUMAN C1-ESTERASE INHIBITOR
     Indication: HEREDITARY ANGIOEDEMA
     Dosage: 2100 IU, AS NEEDED
     Route: 042
     Dates: start: 20190105
  13. HEPARIN [Concomitant]
     Active Substance: HEPARIN SODIUM
  14. MULTI-VITAMIN DAILY [Concomitant]
  15. FIRAZYR [Concomitant]
     Active Substance: ICATIBANT ACETATE
  16. TAKHZYRO [Concomitant]
     Active Substance: LANADELUMAB-FLYO
  17. FLONASE [Concomitant]
     Active Substance: FLUTICASONE PROPIONATE
  18. ELETRIPTAN. [Concomitant]
     Active Substance: ELETRIPTAN
  19. KALBITOR [Concomitant]
     Active Substance: ECALLANTIDE
  20. WELLBUTRIN [Concomitant]
     Active Substance: BUPROPION HYDROCHLORIDE
  21. ONDANSETRON [Concomitant]
     Active Substance: ONDANSETRON
  22. LEVOTHYROXINE SODIUM. [Concomitant]
     Active Substance: LEVOTHYROXINE SODIUM
  23. DIPHENHYDRAMINE. [Concomitant]
     Active Substance: DIPHENHYDRAMINE
  24. IBUPROFEN. [Concomitant]
     Active Substance: IBUPROFEN
  25. ACETAMINOPHEN. [Concomitant]
     Active Substance: ACETAMINOPHEN
  26. GLUCOSAMINE [Concomitant]
     Active Substance: GLUCOSAMINE
  27. ATORVASTATIN [Concomitant]
     Active Substance: ATORVASTATIN
  28. EPINEPHRINE. [Concomitant]
     Active Substance: EPINEPHRINE
  29. VITAMIN C [Concomitant]
     Active Substance: ASCORBIC ACID
  30. PROTONIX 40 [Concomitant]
  31. FENOFIBRATE. [Concomitant]
     Active Substance: FENOFIBRATE

REACTIONS (1)
  - Hereditary angioedema [Unknown]

NARRATIVE: CASE EVENT DATE: 20190114
